FAERS Safety Report 10571508 (Version 2)
Quarter: 2015Q2

REPORT INFORMATION
  Report Type: Spontaneous
  Country: US (occurrence: US)
  Receive Date: 20141107
  Receipt Date: 20150403
  Transmission Date: 20150821
  Serious: No
  Sender: FDA-Public Use
  Company Number: US-GLAXOSMITHKLINE-US2014GSK017780

PATIENT
  Age: 28 Year
  Sex: Male

DRUGS (4)
  1. VYVANSE [Concomitant]
     Active Substance: LISDEXAMFETAMINE DIMESYLATE
  2. LAMICTAL [Suspect]
     Active Substance: LAMOTRIGINE
     Indication: DEPRESSION
  3. LAMICTAL [Suspect]
     Active Substance: LAMOTRIGINE
     Indication: SEIZURE
     Dosage: 200 MG, BID
     Route: 048
     Dates: start: 2006
  4. WINE [Suspect]
     Active Substance: WINE
     Dosage: 1 GLASS

REACTIONS (1)
  - Blood alcohol increased [Not Recovered/Not Resolved]

NARRATIVE: CASE EVENT DATE: 20140801
